FAERS Safety Report 15802646 (Version 2)
Quarter: 2019Q3

REPORT INFORMATION
  Report Type: Report from Study
  Country: None (occurrence: US)
  Receive Date: 20190109
  Receipt Date: 20190923
  Transmission Date: 20191004
  Serious: Yes (Disabling)
  Sender: FDA-Public Use
  Company Number: US-ABBVIE-19K-163-2617963-00

PATIENT
  Sex: Female

DRUGS (2)
  1. HUMIRA [Suspect]
     Active Substance: ADALIMUMAB
     Indication: PSORIATIC ARTHROPATHY
     Route: 058
  2. HUMIRA [Suspect]
     Active Substance: ADALIMUMAB
     Indication: PSORIASIS

REACTIONS (5)
  - Arthritis [Not Recovered/Not Resolved]
  - Confusional state [Unknown]
  - Disability [Unknown]
  - Cough [Unknown]
  - Weight decreased [Unknown]
